FAERS Safety Report 11230053 (Version 2)
Quarter: 2015Q3

REPORT INFORMATION
  Report Type: Spontaneous
  Country: DE (occurrence: DE)
  Receive Date: 20150701
  Receipt Date: 20150914
  Transmission Date: 20151125
  Serious: Yes (Other)
  Sender: FDA-Public Use
  Company Number: DE-UCBSA-2015021338

PATIENT
  Age: 2 Year
  Sex: Male
  Weight: 15.9 kg

DRUGS (3)
  1. KEPPRA [Suspect]
     Active Substance: LEVETIRACETAM
     Indication: EPILEPSY
     Dosage: 600 MG, 2X/DAY (BID)
     Route: 048
     Dates: start: 20131205
  2. URSOFALK [Concomitant]
     Active Substance: URSODIOL
     Indication: HEPATIC FIBROSIS
     Dosage: 320 MG, 2X/DAY (BID)
     Dates: start: 201110
  3. LEVETIRACETAM UCB [Suspect]
     Active Substance: LEVETIRACETAM
     Indication: PRODUCT USED FOR UNKNOWN INDICATION
     Dosage: 250 MG, 2X/DAY (BID), 30 MG/KG TWICE DAILY

REACTIONS (3)
  - Thrombocytopenia [Not Recovered/Not Resolved]
  - Off label use [Unknown]
  - Leukopenia [Unknown]

NARRATIVE: CASE EVENT DATE: 201108
